FAERS Safety Report 9903634 (Version 2)
Quarter: 2014Q1

REPORT INFORMATION
  Report Type: Report from Study
  Country: DE (occurrence: DE)
  Receive Date: 20140217
  Receipt Date: 20140217
  Transmission Date: 20141002
  Serious: Yes (Other)
  Sender: FDA-Public Use
  Company Number: DE-ABBVIE-13P-062-1174286-00

PATIENT
  Age: 34 Year
  Sex: Female
  Weight: 55 kg

DRUGS (1)
  1. HUMIRA [Suspect]
     Indication: CROHN^S DISEASE
     Route: 058

REACTIONS (5)
  - Soft tissue inflammation [Not Recovered/Not Resolved]
  - Fistula [Unknown]
  - Soft tissue inflammation [Recovered/Resolved]
  - Osteomyelitis [Unknown]
  - Pilonidal cyst [Unknown]
